FAERS Safety Report 7985891-X (Version None)
Quarter: 2011Q4

REPORT INFORMATION
  Report Type: 
  Country: None (occurrence: None)
  Receive Date: 20111214
  Receipt Date: 20111202
  Transmission Date: 20120403
  Serious: Yes (Hospitalization, Disabling)
  Sender: FDA-Public Use
  Company Number: 2011SP056769

PATIENT
  Age: 56 Year
  Sex: Female

DRUGS (5)
  1. VICTRELIS [Suspect]
     Indication: HEPATITIS C
     Dosage: ;PO
     Route: 048
     Dates: start: 20111021, end: 20111130
  2. PEGASYS [Suspect]
     Indication: HEPATITIS C
     Dates: end: 20111130
  3. MELATONIN [Concomitant]
  4. GLUCOSAMINE [Concomitant]
  5. RIBAVIRIN [Suspect]
     Indication: HEPATITIS C
     Dates: end: 20111130

REACTIONS (5)
  - DYSGEUSIA [None]
  - BURNING SENSATION [None]
  - DRUG INEFFECTIVE [None]
  - VISION BLURRED [None]
  - ANAEMIA [None]
